FAERS Safety Report 5839988-0 (Version None)
Quarter: 2008Q3

REPORT INFORMATION
  Report Type: 
  Country: None (occurrence: None)
  Receive Date: 20080811
  Receipt Date: 20080730
  Transmission Date: 20090109
  Serious: Yes (Death, Hospitalization, Other)
  Sender: FDA-Public Use
  Company Number: US-JNJFOC-20071202395

PATIENT
  Sex: Male
  Weight: 81.19 kg

DRUGS (14)
  1. REMICADE [Suspect]
     Dosage: ONCE EVERY 6 TO 7 WEEKS
     Route: 042
  2. REMICADE [Suspect]
     Indication: CROHN'S DISEASE
     Dosage: STARTED IN OCT OR NOV-2005
     Route: 042
  3. MERCAPTOPURINE [Suspect]
  4. MERCAPTOPURINE [Suspect]
  5. MERCAPTOPURINE [Suspect]
     Indication: CROHN'S DISEASE
  6. ALLOPURINOL [Concomitant]
  7. WELLBUTRIN [Concomitant]
  8. BENTYL [Concomitant]
  9. DOXYCYCLINE HCL [Concomitant]
  10. CLARITIN [Concomitant]
  11. MESALAMINE [Concomitant]
  12. PROTONIX [Concomitant]
  13. ZOLOFT [Concomitant]
  14. AMBIEN [Concomitant]

REACTIONS (5)
  - COLLAPSE OF LUNG [None]
  - HEPATOSPLENIC T-CELL LYMPHOMA [None]
  - MECHANICAL VENTILATION [None]
  - RENAL FAILURE [None]
  - SINUS DISORDER [None]
